FAERS Safety Report 6186430-9 (Version None)
Quarter: 2009Q2

REPORT INFORMATION
  Report Type: 
  Country: None (occurrence: None)
  Receive Date: 20090511
  Receipt Date: 20090427
  Transmission Date: 20091009
  Serious: Yes (Hospitalization)
  Sender: FDA-Public Use
  Company Number: BE-AMGEN-US344542

PATIENT
  Age: 49 Year
  Sex: Male

DRUGS (4)
  1. ENBREL [Suspect]
     Indication: RHEUMATOID ARTHRITIS
     Route: 058
     Dates: start: 20061123, end: 20081206
  2. PREDNISOLONE [Concomitant]
     Dosage: 3 MG
  3. ARCOXIA [Concomitant]
     Dosage: 90 MG
  4. LEDERTREXATE [Concomitant]
     Dosage: 2.5 MG

REACTIONS (4)
  - ABSCESS LIMB [None]
  - ERYTHEMA [None]
  - FEELING HOT [None]
  - OEDEMA PERIPHERAL [None]
